FAERS Safety Report 5155371-8 (Version None)
Quarter: 2006Q4

REPORT INFORMATION
  Report Type: 
  Country: None (occurrence: None)
  Receive Date: 20061114
  Receipt Date: 20061030
  Transmission Date: 20070319
  Serious: Yes (Hospitalization, Other)
  Sender: FDA-Public Use
  Company Number: 2006SP005304

PATIENT

DRUGS (1)
  1. ASMANEX TWISTHALER [Suspect]
     Indication: DRUG USE FOR UNKNOWN INDICATION
     Dosage: 0 DF; PO
     Route: 048

REACTIONS (3)
  - FUNGAL INFECTION [None]
  - LUNG INFECTION [None]
  - MEDICAL DEVICE COMPLICATION [None]
